FAERS Safety Report 12755175 (Version 1)
Quarter: 2016Q3

REPORT INFORMATION
  Report Type: Report from Study
  Country: US (occurrence: US)
  Receive Date: 20160916
  Receipt Date: 20160916
  Transmission Date: 20161109
  Serious: No
  Sender: FDA-Public Use
  Company Number: US-AMGEN-USASL2016123297

PATIENT
  Age: 49 Year
  Sex: Female

DRUGS (1)
  1. ENBREL [Suspect]
     Active Substance: ETANERCEPT
     Indication: RHEUMATOID ARTHRITIS
     Dosage: 50 MG, QWK
     Route: 065

REACTIONS (8)
  - Joint swelling [Unknown]
  - Limb mass [Unknown]
  - Blood blister [Unknown]
  - Peripheral swelling [Unknown]
  - Contusion [Unknown]
  - Injection site reaction [Unknown]
  - Increased tendency to bruise [Unknown]
  - Limb injury [Unknown]

NARRATIVE: CASE EVENT DATE: 201608
